FAERS Safety Report 6123159-7 (Version None)
Quarter: 2009Q1

REPORT INFORMATION
  Report Type: 
  Country: None (occurrence: None)
  Receive Date: 20090318
  Receipt Date: 20080629
  Transmission Date: 20090719
  Serious: Yes (Life-Threatening)
  Sender: FDA-Public Use
  Company Number: PHHY2008JP33821

PATIENT
  Age: 20 Year

DRUGS (1)
  1. VOLTAREN [Suspect]

REACTIONS (1)
  - SUICIDE ATTEMPT [None]
